FAERS Safety Report 9444050 (Version 1)
Quarter: 2013Q3

REPORT INFORMATION
  Report Type: Spontaneous
  Country: US (occurrence: US)
  Receive Date: 20130807
  Receipt Date: 20130807
  Transmission Date: 20140515
  Serious: No
  Sender: FDA-Public Use
  Company Number: US-US-EMD SERONO, INC.-7227013

PATIENT
  Age: 58 Year
  Sex: Male

DRUGS (7)
  1. REBIF [Suspect]
     Indication: PRODUCT USED FOR UNKNOWN INDICATION
     Route: 058
  2. REBIF [Suspect]
     Route: 058
  3. CETRIZINE [Concomitant]
     Indication: PRODUCT USED FOR UNKNOWN INDICATION
  4. FAMOTIDINE [Concomitant]
     Indication: PRODUCT USED FOR UNKNOWN INDICATION
  5. OMEPRAZOL                          /00661201/ [Concomitant]
     Indication: PRODUCT USED FOR UNKNOWN INDICATION
  6. LOSARTAN POTASSIUM [Concomitant]
     Indication: PRODUCT USED FOR UNKNOWN INDICATION
  7. ACETYLSALICYLIC ACID [Concomitant]
     Indication: PRODUCT USED FOR UNKNOWN INDICATION

REACTIONS (4)
  - Gastric ulcer [Unknown]
  - Ear infection [Unknown]
  - Tremor [Unknown]
  - Weight decreased [Unknown]
